FAERS Safety Report 21765606 (Version 1)
Quarter: 2022Q4

REPORT INFORMATION
  Report Type: Spontaneous
  Country: NL (occurrence: None)
  Receive Date: 20221222
  Receipt Date: 20221222
  Transmission Date: 20230113
  Serious: Yes (Life-Threatening, Hospitalization)
  Sender: FDA-Public Use
  Company Number: 2022A410921

PATIENT
  Sex: Female
  Weight: 6 kg

DRUGS (1)
  1. OMEPRAZOLE [Suspect]
     Active Substance: OMEPRAZOLE
     Indication: Regurgitation
     Dosage: 2D2,5ML
     Route: 065
     Dates: start: 20220801, end: 20221101

REACTIONS (2)
  - Choking [Recovered/Resolved]
  - Product substitution issue [Unknown]
